FAERS Safety Report 24543491 (Version 1)
Quarter: 2024Q4

REPORT INFORMATION
  Report Type: Spontaneous
  Country: US (occurrence: US)
  Receive Date: 20241024
  Receipt Date: 20241024
  Transmission Date: 20250115
  Serious: Yes (Other)
  Sender: AMGEN
  Company Number: US-AMGEN-USASP2024206786

PATIENT

DRUGS (2)
  1. RIABNI [Suspect]
     Active Substance: RITUXIMAB-ARRX
     Indication: Non-Hodgkin^s lymphoma
     Dosage: 800 MILLIGRAM (1 X 500 MG AND 3 X 100MG VIALS)
     Route: 065
  2. RIABNI [Suspect]
     Active Substance: RITUXIMAB-ARRX
     Dosage: 800 MILLIGRAM (1 X 500 MG AND 3 X 100MG VIALS)
     Route: 065

REACTIONS (1)
  - Paracentesis [Unknown]

NARRATIVE: CASE EVENT DATE: 20241017
